FAERS Safety Report 7024715-4 (Version None)
Quarter: 2010Q4

REPORT INFORMATION
  Report Type: 
  Country: None (occurrence: None)
  Receive Date: 20101001
  Receipt Date: 20100927
  Transmission Date: 20110411
  Serious: Yes (Hospitalization, Other)
  Sender: FDA-Public Use
  Company Number: US-SANOFI-AVENTIS-2010SA047829

PATIENT
  Age: 84 Year
  Sex: Male
  Weight: 88 kg

DRUGS (11)
  1. JEVTANA KIT [Suspect]
     Indication: PROSTATE CANCER METASTATIC
     Route: 042
     Dates: start: 20100729, end: 20100729
  2. NEULASTA [Concomitant]
     Dates: start: 20100730
  3. ZOMETA [Concomitant]
     Dates: start: 20100218
  4. DEXAMETHASONE [Concomitant]
     Indication: PREMEDICATION
     Route: 042
  5. PREDNISONE [Concomitant]
  6. PANTOPRAZOLE [Concomitant]
  7. MARINOL [Concomitant]
     Indication: APPETITE DISORDER
  8. COMPAZINE [Concomitant]
  9. VITAMIN B-12 [Concomitant]
  10. ACIPHEX [Concomitant]
  11. FOLIC ACID [Concomitant]

REACTIONS (6)
  - CHEST PAIN [None]
  - CONSTIPATION [None]
  - HAEMOGLOBIN DECREASED [None]
  - LUNG INFILTRATION [None]
  - MYOCARDIAL INFARCTION [None]
  - NEUTROPENIA [None]
